FAERS Safety Report 7816424-6 (Version None)
Quarter: 2011Q4

REPORT INFORMATION
  Report Type: 
  Country: None (occurrence: None)
  Receive Date: 20111017
  Receipt Date: 20100604
  Transmission Date: 20120403
  Serious: Yes (Other)
  Sender: FDA-Public Use
  Company Number: US-JNJFOC-20111002912

PATIENT
  Age: 8 Year
  Sex: Male

DRUGS (2)
  1. CHILDREN'S TYLENOL SUSPENSION [Suspect]
     Indication: PRODUCT USED FOR UNKNOWN INDICATION
  2. CHILDREN'S TYLENOL SUSPENSION [Suspect]

REACTIONS (3)
  - GASTROENTERITIS [None]
  - WEIGHT DECREASED [None]
  - PRODUCT QUALITY ISSUE [None]
